FAERS Safety Report 24171592 (Version 1)
Quarter: 2024Q3

REPORT INFORMATION
  Report Type: Report from Study
  Country: CA (occurrence: CA)
  Receive Date: 20240805
  Receipt Date: 20240805
  Transmission Date: 20241017
  Serious: Yes (Hospitalization, Other)
  Sender: ABBVIE
  Company Number: CA-ABBVIE-5860400

PATIENT
  Age: 31 Year
  Sex: Female

DRUGS (1)
  1. SKYRIZI [Suspect]
     Active Substance: RISANKIZUMAB-RZAA
     Indication: Crohn^s disease
     Route: 042
     Dates: start: 20240614, end: 20240726

REACTIONS (4)
  - Illness [Unknown]
  - Crohn^s disease [Unknown]
  - Surgery [Unknown]
  - Infection [Unknown]

NARRATIVE: CASE EVENT DATE: 20240101
